FAERS Safety Report 22356759 (Version 13)
Quarter: 2024Q1

REPORT INFORMATION
  Report Type: Spontaneous
  Country: DE (occurrence: DE)
  Receive Date: 20230523
  Receipt Date: 20240219
  Transmission Date: 20240410
  Serious: Yes (Life-Threatening, Other)
  Sender: FDA-Public Use
  Company Number: DE-BoehringerIngelheim-2023-BI-239207

PATIENT
  Age: 86 Year
  Sex: Female
  Weight: 56 kg

DRUGS (51)
  1. CLONIDINE [Suspect]
     Active Substance: CLONIDINE
     Indication: Coronary artery disease
     Route: 042
     Dates: start: 20000913, end: 20000913
  2. CLONIDINE [Suspect]
     Active Substance: CLONIDINE
     Indication: Hypertension
  3. OMEPRAZOLE MAGNESIUM [Suspect]
     Active Substance: OMEPRAZOLE MAGNESIUM
     Indication: Product used for unknown indication
     Route: 048
     Dates: start: 20000820, end: 20000917
  4. OMEPRAZOLE MAGNESIUM [Suspect]
     Active Substance: OMEPRAZOLE MAGNESIUM
     Indication: Prophylaxis against gastrointestinal ulcer
  5. NOVALGIN (METAMIZOLE SODIUM) [Suspect]
     Active Substance: METAMIZOLE SODIUM
     Indication: Pain
     Route: 048
     Dates: start: 20000820, end: 20000917
  6. VIOXX [Suspect]
     Active Substance: ROFECOXIB
     Indication: Rheumatic disorder
     Dosage: CUMULATIVE DOSE 250 MILLIGRAM
     Route: 048
     Dates: start: 20000907, end: 20000917
  7. VIOXX [Suspect]
     Active Substance: ROFECOXIB
     Indication: Rheumatic disorder
  8. NOREPINEPHRINE\NOREPINEPHRINE BITARTRATE [Suspect]
     Active Substance: NOREPINEPHRINE\NOREPINEPHRINE BITARTRATE
     Indication: Preoperative care
     Dosage: 3 DF
     Route: 042
     Dates: start: 20000913, end: 20000913
  9. NOREPINEPHRINE\NOREPINEPHRINE BITARTRATE [Suspect]
     Active Substance: NOREPINEPHRINE\NOREPINEPHRINE BITARTRATE
     Indication: Coronary artery disease
  10. XYLOCAINE [Suspect]
     Active Substance: LIDOCAINE HYDROCHLORIDE
     Indication: Local anaesthesia
     Route: 058
     Dates: start: 20000913, end: 20000913
  11. DIAZEPAM [Suspect]
     Active Substance: DIAZEPAM
     Indication: Sedative therapy
     Dosage: ENDOTRACHEOPULMONARY INSTILLATION, ?SUSPENSION (PDF-11603000)
     Route: 042
     Dates: start: 20000913, end: 20000913
  12. PLAVIX [Suspect]
     Active Substance: CLOPIDOGREL BISULFATE
     Indication: Anticoagulation drug level abnormal
     Dosage: 1 DF?CUMULATIVE DOSE : 4 DF
     Route: 048
     Dates: start: 20000913, end: 20000917
  13. PLAVIX [Suspect]
     Active Substance: CLOPIDOGREL BISULFATE
     Indication: Thrombosis prophylaxis
  14. PLAVIX [Suspect]
     Active Substance: CLOPIDOGREL BISULFATE
     Indication: Coagulopathy
  15. LORMETAZEPAM [Suspect]
     Active Substance: LORMETAZEPAM
     Indication: Sedation
     Dosage: 2 DF
     Route: 048
     Dates: start: 20000913, end: 20000913
  16. MOLSIDOMINE [Suspect]
     Active Substance: MOLSIDOMINE
     Indication: Coronary artery disease
     Dosage: CUMULATIVE DOSE AT 1ST REACTION: 208 MILLIGRAM
     Route: 042
     Dates: start: 20000820, end: 20000914
  17. INSULIN NOS [Suspect]
     Active Substance: INSULIN NOS
     Indication: Diabetes mellitus
     Dosage: EXCEPT ON 13 SEP 2000 WHEN GIVEN INTRAVENOUUNK
     Route: 058
     Dates: start: 20000913, end: 20000913
  18. FRAGMIN [Suspect]
     Active Substance: DALTEPARIN SODIUM
     Indication: Coagulopathy
     Route: 058
     Dates: start: 20000820, end: 20000917
  19. FRAGMIN [Suspect]
     Active Substance: DALTEPARIN SODIUM
     Indication: Thrombosis prophylaxis
  20. PREDNISONE [Suspect]
     Active Substance: PREDNISONE
     Indication: Dermatitis bullous
     Route: 048
  21. PREDNISONE [Suspect]
     Active Substance: PREDNISONE
     Indication: Pemphigoid
  22. TORSEMIDE [Suspect]
     Active Substance: TORSEMIDE
     Indication: Cardiac failure
     Dosage: CUMULATIVE DOSE140 MILLIGRAM
     Route: 048
     Dates: start: 20000820, end: 20000917
  23. GLYBURIDE [Suspect]
     Active Substance: GLYBURIDE
     Indication: Diabetes mellitus
     Dosage: 3 DF
     Dates: start: 20000820, end: 20000917
  24. ESTRIOL [Suspect]
     Active Substance: ESTRIOL
     Indication: Vulvovaginal disorder
     Dosage: 1 DF?CUMULATIVE DOSE 18 DF
     Dates: start: 20000820, end: 20000906
  25. CLEMASTINE FUMARATE [Suspect]
     Active Substance: CLEMASTINE FUMARATE
     Indication: Pemphigoid
     Dosage: 2 DF?CUMULATIVE DOSE : 18 DF
     Dates: start: 20000820, end: 20000828
  26. ISOSORBIDE MONONITRATE [Suspect]
     Active Substance: ISOSORBIDE MONONITRATE
     Indication: Angina pectoris
     Dosage: 1 DF?CUMULATIVE DOSE 28 DF
     Route: 048
     Dates: start: 20000820, end: 20000917
  27. ASPIRIN [Suspect]
     Active Substance: ASPIRIN
     Indication: Coagulopathy
     Dosage: CUMULATIVE DOSE 700 MILLIGRAM
     Dates: start: 20000914, end: 20000917
  28. NORTRIPTYLINE [Suspect]
     Active Substance: NORTRIPTYLINE
     Indication: Coronary artery disease
     Route: 042
     Dates: start: 20000913, end: 20000913
  29. ROFECOXIB [Suspect]
     Active Substance: ROFECOXIB
     Indication: Rheumatic disorder
     Dates: start: 20000907, end: 20000917
  30. MOLSIDOMINE [Suspect]
     Active Substance: MOLSIDOMINE
     Indication: Coronary artery disease
     Route: 048
     Dates: start: 20000820, end: 20000914
  31. FENTANYL [Concomitant]
     Active Substance: FENTANYL\FENTANYL CITRATE
     Indication: Pain
     Dosage: CUMULATIVE DOSE : 9 DF
     Route: 042
     Dates: start: 20000820, end: 20000916
  32. CALCIUM  BRAUSETABLETTEN [Concomitant]
     Indication: Osteoporosis
     Dosage: 1 DF
     Dates: start: 20000820, end: 20000917
  33. DEXTROSE [Concomitant]
     Active Substance: DEXTROSE\DEXTROSE MONOHYDRATE
     Indication: Diabetes mellitus
     Route: 042
     Dates: start: 20000913, end: 20000913
  34. DEXTROSE [Concomitant]
     Active Substance: DEXTROSE\DEXTROSE MONOHYDRATE
     Indication: Cardiovascular disorder
  35. RINGERS SOLUTION [Concomitant]
     Active Substance: CALCIUM CHLORIDE\POTASSIUM CHLORIDE\SODIUM CHLORIDE
     Indication: Anaesthesia
     Route: 042
     Dates: start: 20000913, end: 20000914
  36. RINGERS SOLUTION [Concomitant]
     Active Substance: CALCIUM CHLORIDE\POTASSIUM CHLORIDE\SODIUM CHLORIDE
     Indication: Electrolyte depletion
  37. COTRIM [Concomitant]
     Active Substance: SULFAMETHOXAZOLE\TRIMETHOPRIM
     Indication: Urinary tract infection
     Dosage: 1 DF
     Route: 048
     Dates: start: 20000916, end: 20000917
  38. NOREPINEPHRINE [Concomitant]
     Active Substance: NOREPINEPHRINE
     Indication: Diabetes mellitus
     Dosage: 3DF
     Route: 042
     Dates: start: 20000913, end: 20000913
  39. CALCIUM GLUCONATE [Concomitant]
     Active Substance: CALCIUM GLUCONATE
     Indication: Osteoporosis
     Dosage: 1 DOSAGE FORM
     Route: 048
     Dates: start: 20000820, end: 20000917
  40. PREDNISONE [Concomitant]
     Active Substance: PREDNISONE
     Indication: Product used for unknown indication
  41. CALCIUM CHLORIDE [Concomitant]
     Active Substance: CALCIUM CHLORIDE
     Indication: Electrolyte depletion
     Dosage: ENDOTRACHEOPULMONARY INSTILLATION, SUSPENSION
     Dates: start: 20230913, end: 20230914
  42. CALCIUM CHLORIDE [Concomitant]
     Active Substance: CALCIUM CHLORIDE
     Indication: Fluid retention
  43. OMEPRAZOLE [Concomitant]
     Active Substance: OMEPRAZOLE
     Indication: Prophylaxis against gastrointestinal ulcer
     Route: 048
     Dates: start: 20000820, end: 20000917
  44. POTASSIUM CHLORIDE [Concomitant]
     Active Substance: POTASSIUM CHLORIDE
     Indication: Electrolyte depletion
     Route: 042
     Dates: start: 20000913, end: 20000914
  45. POTASSIUM CHLORIDE [Concomitant]
     Active Substance: POTASSIUM CHLORIDE
     Indication: Fluid retention
  46. BAXTER HEALTHCARE RINGERS [Concomitant]
     Indication: Electrolyte depletion
     Route: 042
     Dates: start: 20000913, end: 20000914
  47. SULFAMETHOXAZOLE [Concomitant]
     Active Substance: SULFAMETHOXAZOLE
     Indication: Prophylaxis against gastrointestinal ulcer
     Dosage: 560MG CUMULATIVE DOSE
     Dates: start: 20000916, end: 20000917
  48. LORMETAZEPAM [Concomitant]
     Active Substance: LORMETAZEPAM
     Indication: Sedation
     Dosage: 2 DF, QD (1 DOSE DAILY SUSPENSION AEROSOL)
     Route: 048
     Dates: start: 20000913, end: 20000913
  49. SODIUM CHLORIDE [Concomitant]
     Indication: Electrolyte depletion
     Route: 042
     Dates: start: 20000913, end: 20000914
  50. CALCIUM CITRATE [Concomitant]
     Active Substance: CALCIUM CITRATE
     Indication: Osteoporosis
     Dosage: 27 DF
     Route: 048
     Dates: start: 20000820, end: 20000917
  51. GLYBURIDE [Concomitant]
     Active Substance: GLYBURIDE
     Indication: Diabetes mellitus
     Dosage: 3 DF
     Route: 048
     Dates: start: 20000820, end: 20000917

REACTIONS (6)
  - Toxic epidermal necrolysis [Recovered/Resolved]
  - Erythema [Recovered/Resolved]
  - Blister [Recovered/Resolved]
  - Genital erosion [Recovered/Resolved]
  - Mouth ulceration [Recovered/Resolved]
  - Conjunctivitis [Recovered/Resolved]

NARRATIVE: CASE EVENT DATE: 20000916
